FAERS Safety Report 7320764-7 (Version None)
Quarter: 2011Q1

REPORT INFORMATION
  Report Type: 
  Country: None (occurrence: None)
  Receive Date: 20110228
  Receipt Date: 20110222
  Transmission Date: 20110831
  Serious: Yes (Hospitalization, Other)
  Sender: FDA-Public Use
  Company Number: DE-ELI_LILLY_AND_COMPANY-DE201102005882

PATIENT
  Age: 73 Year
  Sex: Female

DRUGS (1)
  1. FORTEO [Suspect]
     Indication: OSTEOPOROSIS
     Dosage: 20 UG, DAILY (1/D)
     Route: 058
     Dates: start: 20100219

REACTIONS (6)
  - MALAISE [None]
  - PNEUMONITIS [None]
  - GASTRIC DISORDER [None]
  - NASOPHARYNGITIS [None]
  - DYSPEPSIA [None]
  - DECREASED APPETITE [None]
